FAERS Safety Report 7471292-X (Version None)
Quarter: 2011Q2

REPORT INFORMATION
  Report Type: 
  Country: None (occurrence: None)
  Receive Date: 20110510
  Receipt Date: 20110329
  Transmission Date: 20111010
  Serious: Yes (Other)
  Sender: FDA-Public Use
  Company Number: US-AMGEN-USASP2010003085

PATIENT
  Age: 54 Year
  Sex: Female

DRUGS (4)
  1. PLAQUENIL [Concomitant]
     Dosage: 200 MG, BID
     Route: 048
  2. ENBREL [Suspect]
     Dosage: 50 MG, QWK
  3. CELEBREX [Concomitant]
  4. ENBREL [Suspect]
     Indication: RHEUMATOID ARTHRITIS
     Dosage: 50 MG, QWK
     Dates: start: 20101010

REACTIONS (32)
  - PAIN [None]
  - PAIN IN EXTREMITY [None]
  - URINARY RETENTION [None]
  - VESSEL PUNCTURE SITE HAEMORRHAGE [None]
  - PARAESTHESIA [None]
  - INFLUENZA LIKE ILLNESS [None]
  - ABDOMINAL DISCOMFORT [None]
  - SKIN REACTION [None]
  - VEIN DISCOLOURATION [None]
  - HYPERHIDROSIS [None]
  - CONTUSION [None]
  - DIARRHOEA [None]
  - INJECTION SITE PAIN [None]
  - PRURITUS [None]
  - CHILLS [None]
  - VEIN PAIN [None]
  - VEIN DISORDER [None]
  - HYPOAESTHESIA [None]
  - CONSTIPATION [None]
  - SKIN DISCOLOURATION [None]
  - FATIGUE [None]
  - SNEEZING [None]
  - INJECTION SITE PRURITUS [None]
  - VAGINAL DISCHARGE [None]
  - OEDEMA PERIPHERAL [None]
  - HEADACHE [None]
  - VULVOVAGINAL BURNING SENSATION [None]
  - OEDEMA [None]
  - URINARY INCONTINENCE [None]
  - PYREXIA [None]
  - INJECTION SITE HAEMATOMA [None]
  - LYMPHADENOPATHY [None]
